FAERS Safety Report 19984539 (Version 2)
Quarter: 2021Q4

REPORT INFORMATION
  Report Type: Spontaneous
  Country: US (occurrence: US)
  Receive Date: 20211021
  Receipt Date: 20211028
  Transmission Date: 20220303
  Serious: Yes (Life-Threatening, Hospitalization, Other)
  Sender: FDA-Public Use
  Company Number: US-TEVA-2021-US-1966693

PATIENT
  Age: 5 Year
  Sex: Female

DRUGS (17)
  1. ERYTHROMYCIN [Interacting]
     Active Substance: ERYTHROMYCIN
     Indication: Gastrointestinal motility disorder
     Route: 065
  2. FLUCONAZOLE [Interacting]
     Active Substance: FLUCONAZOLE
     Indication: Antifungal prophylaxis
     Route: 065
  3. METHYLPREDNISOLONE [Suspect]
     Active Substance: METHYLPREDNISOLONE
     Indication: Encephalitis autoimmune
     Dosage: 50 MG/KG DAILY;
     Route: 042
  4. HUMAN IMMUNOGLOBULIN G [Suspect]
     Active Substance: HUMAN IMMUNOGLOBULIN G
     Indication: Encephalitis autoimmune
     Route: 042
  5. RITUXIMAB [Suspect]
     Active Substance: RITUXIMAB
     Indication: Encephalitis autoimmune
     Dosage: 320MG ONCE IN A WEEK
     Route: 042
  6. RITUXIMAB [Suspect]
     Active Substance: RITUXIMAB
     Indication: Encephalitis autoimmune
     Dosage: THERAPY EXTENDED
     Route: 042
  7. CYCLOPHOSPHAMIDE [Suspect]
     Active Substance: CYCLOPHOSPHAMIDE
     Indication: Encephalitis autoimmune
     Dosage: 640MG, SINGLE DOSE
     Route: 042
  8. BORTEZOMIB [Suspect]
     Active Substance: BORTEZOMIB
     Indication: Encephalitis autoimmune
     Dosage: ON DAY 1, 4, 8 AND 11 ON 21 DAY CYCLE
     Route: 042
  9. FENTANYL [Concomitant]
     Active Substance: FENTANYL
     Indication: Prophylaxis
     Route: 050
  10. DEXMEDETOMIDINE [Concomitant]
     Active Substance: DEXMEDETOMIDINE
     Indication: Prophylaxis
     Route: 050
  11. CISATRACURIUM [Concomitant]
     Active Substance: CISATRACURIUM
     Indication: Prophylaxis
     Route: 050
  12. METHADONE [Concomitant]
     Active Substance: METHADONE HYDROCHLORIDE
     Indication: Product used for unknown indication
     Route: 065
  13. LORAZEPAM [Concomitant]
     Active Substance: LORAZEPAM
     Indication: Sedative therapy
     Route: 065
  14. CLONIDINE [Concomitant]
     Active Substance: CLONIDINE
     Indication: Product used for unknown indication
     Route: 065
  15. DIAZEPAM [Concomitant]
     Active Substance: DIAZEPAM
     Indication: Sedative therapy
     Route: 065
  16. DEXAMETHASONE [Concomitant]
     Active Substance: DEXAMETHASONE
     Indication: Encephalitis autoimmune
     Dosage: PER DAY
     Route: 042
  17. PREDNISONE [Concomitant]
     Active Substance: PREDNISONE
     Indication: Encephalitis autoimmune
     Dosage: ON DAYS 2, 3, 4, 6 THROUGH 10, AND 12 THROUGH 21 OF EACH CYCLE
     Route: 042

REACTIONS (3)
  - Drug ineffective [Unknown]
  - Neutropenia [Recovered/Resolved]
  - Drug interaction [Unknown]
